FAERS Safety Report 22157832 (Version 4)
Quarter: 2024Q1

REPORT INFORMATION
  Report Type: Spontaneous
  Country: US (occurrence: US)
  Receive Date: 20230330
  Receipt Date: 20240105
  Transmission Date: 20240410
  Serious: No
  Sender: FDA-Public Use
  Company Number: US-PFIZER INC-PV202300057565

PATIENT
  Age: 70 Year
  Sex: Female

DRUGS (2)
  1. IBRANCE [Suspect]
     Active Substance: PALBOCICLIB
     Dosage: 100 MG, CYCLIC  [TAKE 100MG ONE WEEK ON FOLLOWED BY ONE WEEK OFF 9EVERY 2 WEEKS)]
  2. IBRANCE [Suspect]
     Active Substance: PALBOCICLIB
     Dosage: TAKE 1 TABLET BY MOUTH DAILY 7 DAYS ON FOLLOWED BY 7 DAYS OFF
     Route: 048

REACTIONS (3)
  - Dyspnoea [Unknown]
  - Anxiety [Unknown]
  - Off label use [Unknown]
